FAERS Safety Report 5194689-X (Version None)
Quarter: 2006Q4

REPORT INFORMATION
  Report Type: 
  Country: None (occurrence: None)
  Receive Date: 20061222
  Receipt Date: 20061222
  Transmission Date: 20070319
  Serious: Yes (Hospitalization)
  Sender: FDA-Public Use
  Company Number: None

PATIENT
  Sex: Male
  Weight: 54.4 kg

DRUGS (1)
  1. XANAX [Suspect]
     Indication: SLEEP DISORDER
     Dosage: ONCE AT BEDTIME PO
     Route: 048

REACTIONS (10)
  - ALCOHOL USE [None]
  - AMNESIA [None]
  - CONTUSION [None]
  - CONVULSION [None]
  - DIZZINESS [None]
  - DRUG SCREEN POSITIVE [None]
  - EPISTAXIS [None]
  - FEELING ABNORMAL [None]
  - LOSS OF CONSCIOUSNESS [None]
  - SELF-MEDICATION [None]
